FAERS Safety Report 11201716 (Version 2)
Quarter: 2015Q2

REPORT INFORMATION
  Report Type: Report from Study
  Country: CA (occurrence: CA)
  Receive Date: 20150619
  Receipt Date: 20150623
  Transmission Date: 20150821
  Serious: Yes (Life-Threatening, Other)
  Sender: FDA-Public Use
  Company Number: CA-JNJFOC-20150610420

PATIENT
  Age: 48 Year
  Sex: Male
  Weight: 118.5 kg

DRUGS (4)
  1. TRADOL [Concomitant]
     Active Substance: TRAMADOL HYDROCHLORIDE
     Route: 065
  2. REMICADE [Suspect]
     Active Substance: INFLIXIMAB
     Indication: ANKYLOSING SPONDYLITIS
     Route: 042
     Dates: start: 20150611, end: 20150611
  3. EPHEDRA [Concomitant]
     Active Substance: EPHEDRA
     Route: 065
  4. ATLANSIL [Concomitant]
     Route: 065

REACTIONS (7)
  - Infusion related reaction [Recovered/Resolved]
  - Dysphonia [Recovered/Resolved]
  - Pharyngeal disorder [Recovered/Resolved]
  - Aphagia [Recovered/Resolved]
  - Cough [Recovered/Resolved]
  - Headache [Recovered/Resolved]
  - Hypoaesthesia oral [Recovered/Resolved]

NARRATIVE: CASE EVENT DATE: 20150611
